FAERS Safety Report 13824917 (Version 1)
Quarter: 2017Q3

REPORT INFORMATION
  Report Type: Spontaneous
  Country: ZA (occurrence: ZA)
  Receive Date: 20170802
  Receipt Date: 20170802
  Transmission Date: 20171127
  Serious: Yes (Other)
  Sender: FDA-Public Use
  Company Number: ZA-NOVOPROD-555299

PATIENT
  Age: 67 Year
  Sex: Female

DRUGS (1)
  1. ESTROFEM [Suspect]
     Active Substance: ESTRADIOL CYPIONATE
     Indication: HORMONE THERAPY
     Dosage: 1 MG
     Route: 065

REACTIONS (1)
  - Road traffic accident [Unknown]
